FAERS Safety Report 7207084-6 (Version None)
Quarter: 2011Q1

REPORT INFORMATION
  Report Type: 
  Country: None (occurrence: None)
  Receive Date: 20110103
  Receipt Date: 20101223
  Transmission Date: 20110831
  Serious: Yes (Hospitalization)
  Sender: FDA-Public Use
  Company Number: B0691718A

PATIENT
  Age: 65 Year
  Sex: Female

DRUGS (5)
  1. ARIXTRA [Suspect]
     Indication: PULMONARY EMBOLISM
     Dosage: 7.5MG PER DAY
     Route: 058
     Dates: start: 20101130, end: 20101202
  2. MADOPAR [Concomitant]
     Indication: PARKINSON'S DISEASE
     Dosage: 750MG PER DAY
     Route: 048
     Dates: start: 20101130
  3. PAROXETINE HCL [Suspect]
     Indication: PRODUCT USED FOR UNKNOWN INDICATION
     Dosage: 20MG PER DAY
     Route: 048
     Dates: start: 20101130
  4. SIFROL [Concomitant]
     Dosage: 1.5MG PER DAY
     Route: 048
     Dates: start: 20101130
  5. PANTOZOL [Concomitant]
     Dosage: 20MG PER DAY
     Route: 048
     Dates: start: 20101130

REACTIONS (4)
  - HAEMORRHAGIC ANAEMIA [None]
  - THROMBOCYTOPENIA [None]
  - HAEMATOMA [None]
  - ABDOMINAL PAIN [None]
